FAERS Safety Report 10064722 (Version 1)
Quarter: 2014Q2

REPORT INFORMATION
  Report Type: Spontaneous
  Country: US (occurrence: None)
  Receive Date: 20140407
  Receipt Date: 20140407
  Transmission Date: 20141212
  Serious: Yes (Hospitalization)
  Sender: FDA-Public Use
  Company Number: None

PATIENT
  Age: 67 Year
  Sex: Male
  Weight: 161.4 kg

DRUGS (2)
  1. ADALIMUMAB [Suspect]
     Dates: start: 20140215, end: 20140217
  2. AMOXICILLIN [Suspect]
     Route: 048
     Dates: end: 20140217

REACTIONS (3)
  - Mouth ulceration [None]
  - Rash papular [None]
  - Rash papular [None]
